FAERS Safety Report 5659485-5 (Version None)
Quarter: 2008Q1

REPORT INFORMATION
  Report Type: 
  Country: None (occurrence: None)
  Receive Date: 20080311
  Receipt Date: 20080304
  Transmission Date: 20080703
  Serious: Yes (Hospitalization)
  Sender: FDA-Public Use
  Company Number: PHBS2008ES02933

PATIENT
  Age: 16 Year
  Sex: Male

DRUGS (1)
  1. TORECAN [Suspect]
     Indication: VERTIGO
     Route: 048
     Dates: start: 20070105, end: 20070112

REACTIONS (1)
  - TORTICOLLIS [None]
